FAERS Safety Report 4782511-2 (Version None)
Quarter: 2005Q3

REPORT INFORMATION
  Report Type: 
  Country: None (occurrence: None)
  Receive Date: 20050929
  Receipt Date: 20050124
  Transmission Date: 20060218
  Serious: No
  Sender: FDA-Public Use
  Company Number: 395881

PATIENT
  Sex: Male

DRUGS (1)
  1. COREG [Suspect]
     Route: 048

REACTIONS (3)
  - FATIGUE [None]
  - HYPOTENSION [None]
  - TACHYCARDIA [None]
